FAERS Safety Report 4300018-3 (Version None)
Quarter: 2004Q1

REPORT INFORMATION
  Report Type: 
  Country: None (occurrence: None)
  Receive Date: 20040218
  Receipt Date: 20040204
  Transmission Date: 20041129
  Serious: Yes (Hospitalization, Other)
  Sender: FDA-Public Use
  Company Number: JP_040202598

PATIENT
  Age: 64 Year
  Sex: Male
  Weight: 52 kg

DRUGS (7)
  1. GEMZAR [Suspect]
     Indication: PANCREATIC CARCINOMA
     Dosage: 450 MG/OTHER
     Dates: start: 20021105, end: 20021122
  2. RADITATION THERAPY [Concomitant]
  3. FAMOTIDINE [Concomitant]
  4. BERIZYM [Concomitant]
  5. SELBEX (TEPRENONE) [Concomitant]
  6. PRIMPERAN TAB [Concomitant]
  7. ZOFRAN [Concomitant]

REACTIONS (4)
  - BONE MARROW DEPRESSION [None]
  - ESCHERICHIA INFECTION [None]
  - LUNG ABSCESS [None]
  - PNEUMONIA BACTERIAL [None]
